FAERS Safety Report 4378416-1 (Version None)
Quarter: 2004Q2

REPORT INFORMATION
  Report Type: 
  Country: None (occurrence: None)
  Receive Date: 20040609
  Receipt Date: 20040602
  Transmission Date: 20050107
  Serious: Yes (Other)
  Sender: FDA-Public Use
  Company Number: 2004216593US

PATIENT
  Sex: Female

DRUGS (3)
  1. SOLU-MEDROL [Suspect]
     Indication: RASH
     Dosage: 120 MG, QID
  2. MEDROL [Suspect]
  3. DELTASONE [Suspect]

REACTIONS (1)
  - OSTEONECROSIS [None]
